FAERS Safety Report 9438747 (Version 2)
Quarter: 2013Q4

REPORT INFORMATION
  Report Type: Spontaneous
  Country: GB (occurrence: GB)
  Receive Date: 20130802
  Receipt Date: 20131107
  Transmission Date: 20140711
  Serious: Yes (Life-Threatening, Hospitalization)
  Sender: FDA-Public Use
  Company Number: GB-ACTAVIS-2013-13517

PATIENT
  Age: 39 Year
  Sex: Female
  Weight: 70 kg

DRUGS (5)
  1. ARIPIPRAZOLE (UNKNOWN) [Suspect]
     Indication: OBSESSIVE-COMPULSIVE DISORDER
     Dosage: 5-10 MG DAILY
     Route: 048
     Dates: start: 200805, end: 201306
  2. SERTRALINE [Concomitant]
     Indication: PRODUCT USED FOR UNKNOWN INDICATION
     Dosage: 150 MG, DAILY
     Route: 065
  3. LITHIUM CARBONATE [Concomitant]
     Indication: PRODUCT USED FOR UNKNOWN INDICATION
     Dosage: 600 MG, DAILY
     Route: 065
  4. RISPERIDONE [Concomitant]
     Indication: PRODUCT USED FOR UNKNOWN INDICATION
     Dosage: UNK
     Route: 065
  5. QUETIAPINE (UNKNOWN) [Suspect]
     Indication: OBSESSIVE-COMPULSIVE DISORDER
     Dosage: 50 MG, UNK
     Route: 048
     Dates: start: 201106, end: 201304

REACTIONS (2)
  - Pulmonary embolism [Recovered/Resolved]
  - Dyspnoea [Recovered/Resolved]
